FAERS Safety Report 5833485-4 (Version None)
Quarter: 2008Q3

REPORT INFORMATION
  Report Type: 
  Country: None (occurrence: None)
  Receive Date: 20080804
  Receipt Date: 20080804
  Transmission Date: 20090109
  Serious: Yes (Other)
  Sender: FDA-Public Use
  Company Number: None

PATIENT
  Age: 61 Year
  Sex: Female
  Weight: 71.6683 kg

DRUGS (1)
  1. ACTONEL [Suspect]
     Indication: OSTEOPOROSIS
     Dosage: 150 MG ONE MONTHLY PO  ONE DOSE
     Route: 048
     Dates: start: 20080712, end: 20080712

REACTIONS (15)
  - ABASIA [None]
  - ANOREXIA [None]
  - ARTHRALGIA [None]
  - BONE PAIN [None]
  - BREAST PAIN [None]
  - DEPRESSION [None]
  - DIARRHOEA [None]
  - DYSSTASIA [None]
  - FATIGUE [None]
  - GAIT DISTURBANCE [None]
  - MUSCULOSKELETAL CHEST PAIN [None]
  - PAIN IN EXTREMITY [None]
  - URINARY INCONTINENCE [None]
  - VOMITING PROJECTILE [None]
  - WEIGHT DECREASED [None]
